FAERS Safety Report 24553801 (Version 1)
Quarter: 2024Q4

REPORT INFORMATION
  Report Type: Report from Study
  Country: US (occurrence: US)
  Receive Date: 20241028
  Receipt Date: 20241028
  Transmission Date: 20250115
  Serious: No
  Sender: ROCHE
  Company Number: US-ROCHE-10000053254

PATIENT
  Age: 13 Year
  Sex: Male

DRUGS (1)
  1. NUTROPIN [Suspect]
     Active Substance: SOMATROPIN
     Indication: Short stature
     Dosage: MORE DOSAGE INFORMATION IS 10 MG AUTO PEN
     Route: 058
     Dates: end: 20250709

REACTIONS (2)
  - Off label use [Unknown]
  - No adverse event [Unknown]
